FAERS Safety Report 13230268 (Version 1)
Quarter: 2017Q1

REPORT INFORMATION
  Report Type: Report from Study
  Country: CA (occurrence: CA)
  Receive Date: 20170214
  Receipt Date: 20170214
  Transmission Date: 20170428
  Serious: Yes (Hospitalization)
  Sender: FDA-Public Use
  Company Number: CA-JNJFOC-20170210313

PATIENT
  Age: 0 Day
  Sex: Male
  Weight: 4.28 kg

DRUGS (1)
  1. REMICADE [Suspect]
     Active Substance: INFLIXIMAB
     Indication: COLITIS ULCERATIVE
     Route: 015

REACTIONS (2)
  - Foetal exposure during pregnancy [Recovered/Resolved]
  - Meconium aspiration syndrome [Recovering/Resolving]

NARRATIVE: CASE EVENT DATE: 20170123
